FAERS Safety Report 10249322 (Version 1)
Quarter: 2014Q2

REPORT INFORMATION
  Report Type: Spontaneous
  Country: US (occurrence: None)
  Receive Date: 20140618
  Receipt Date: 20140618
  Transmission Date: 20141212
  Serious: Yes (Hospitalization, Other)
  Sender: FDA-Public Use
  Company Number: None

PATIENT
  Age: 83 Year
  Sex: Female
  Weight: 62.2 kg

DRUGS (5)
  1. LINEZOLID 600 MG [Suspect]
     Indication: CELLULITIS
     Dosage: 1 TABLET, BID, ORAL
     Route: 048
  2. LINEZOLID 600 MG [Suspect]
     Indication: SEPSIS
     Dosage: 1 TABLET, BID, ORAL
     Route: 048
  3. LEVAQUIN [Concomitant]
  4. ZOSYN [Concomitant]
  5. LOVENOX [Concomitant]

REACTIONS (4)
  - Thrombocytopenia [None]
  - Malaise [None]
  - Decreased appetite [None]
  - Thrombosis [None]
